FAERS Safety Report 10366613 (Version 1)
Quarter: 2014Q3

REPORT INFORMATION
  Report Type: Spontaneous
  Country: US (occurrence: US)
  Receive Date: 20140806
  Receipt Date: 20140806
  Transmission Date: 20150326
  Serious: Yes (Life-Threatening, Hospitalization)
  Sender: FDA-Public Use
  Company Number: US-PFIZER INC-2014214202

PATIENT
  Age: 65 Year
  Sex: Male

DRUGS (1)
  1. BOSULIF [Suspect]
     Active Substance: BOSUTINIB MONOHYDRATE
     Indication: LEUKAEMIA
     Dosage: 400 MG, DAILY
     Route: 048
     Dates: start: 20140523

REACTIONS (3)
  - Nausea [Unknown]
  - Ischaemic stroke [Unknown]
  - Visual impairment [Unknown]

NARRATIVE: CASE EVENT DATE: 20140718
